FAERS Safety Report 6353684-5 (Version None)
Quarter: 2009Q3

REPORT INFORMATION
  Report Type: 
  Country: None (occurrence: None)
  Receive Date: 20090912
  Receipt Date: 20090622
  Transmission Date: 20100115
  Serious: No
  Sender: FDA-Public Use
  Company Number: US-ABBOTT-08P-163-0469859-00

PATIENT
  Sex: Female
  Weight: 89.892 kg

DRUGS (8)
  1. HUMIRA [Suspect]
     Indication: ANKYLOSING SPONDYLITIS
     Dosage: SYRINGE
     Route: 058
     Dates: start: 20080501, end: 20080723
  2. HUMIRA [Suspect]
     Dosage: PEN, WANTS TO GO BACK TO SYRINGES - PEN'S SHARPS CONTAINER
     Dates: start: 20080806
  3. METOPROLOL SUCCINATE [Concomitant]
     Indication: HYPERTENSION
     Route: 048
  4. LOSARTAN POTASSIUM [Concomitant]
     Indication: HYPERTENSION
     Route: 048
  5. HYDROCHLOROTHIAZIDE [Concomitant]
     Indication: HYPERTENSION
     Route: 048
  6. ESTROGENS CONJUGATED [Concomitant]
     Indication: HORMONE THERAPY
     Route: 048
  7. PREDNISONE [Concomitant]
     Indication: ANKYLOSING SPONDYLITIS
     Route: 048
     Dates: start: 20020101
  8. DICLOFENAC DIETHYLAMINE [Concomitant]
     Indication: INFLAMMATION
     Route: 048
     Dates: start: 20080201

REACTIONS (1)
  - INCORRECT DOSE ADMINISTERED [None]
